FAERS Safety Report 11262218 (Version 1)
Quarter: 2015Q3

REPORT INFORMATION
  Report Type: Report from Study
  Country: FR (occurrence: FR)
  Receive Date: 20150710
  Receipt Date: 20150710
  Transmission Date: 20151125
  Serious: Yes (Hospitalization)
  Sender: FDA-Public Use
  Company Number: FR-GLAXOSMITHKLINE-FR2015GSK098890

PATIENT
  Age: 70 Year
  Sex: Male

DRUGS (15)
  1. AMLOR [Concomitant]
     Active Substance: AMLODIPINE BESYLATE
  2. EFIENT [Concomitant]
     Active Substance: PRASUGREL HYDROCHLORIDE
  3. INIPOMP [Concomitant]
     Active Substance: PANTOPRAZOLE SODIUM
  4. CREON [Concomitant]
     Active Substance: PANCRELIPASE AMYLASE\PANCRELIPASE LIPASE\PANCRELIPASE PROTEASE
  5. ATACAND [Concomitant]
     Active Substance: CANDESARTAN CILEXETIL
  6. KARDEGIC [Concomitant]
     Active Substance: ASPIRIN LYSINE
  7. CRESTOR [Concomitant]
     Active Substance: ROSUVASTATIN CALCIUM
  8. OMIX [Concomitant]
     Active Substance: TAMSULOSIN HYDROCHLORIDE
  9. ADANCOR [Concomitant]
     Active Substance: NICORANDIL
  10. PLAVIX [Concomitant]
     Active Substance: CLOPIDOGREL BISULFATE
  11. PRAVADUAL [Concomitant]
     Active Substance: ASPIRIN\PRAVASTATIN
  12. PROZAC [Concomitant]
     Active Substance: FLUOXETINE HYDROCHLORIDE
  13. OMEGA-3-ACID ETHYL ESTERS. [Suspect]
     Active Substance: OMEGA-3-ACID ETHYL ESTERS
     Indication: ISCHAEMIC HEART DISEASE PROPHYLAXIS
     Dosage: UNK
     Dates: start: 20121027, end: 20141006
  14. DETENSIEL [Concomitant]
     Active Substance: BISOPROLOL FUMARATE
  15. COVERSYL [Concomitant]
     Active Substance: PERINDOPRIL

REACTIONS (2)
  - Syncope [Recovered/Resolved]
  - Cardiac disorder [Recovered/Resolved]

NARRATIVE: CASE EVENT DATE: 20121027
